FAERS Safety Report 5315516-3 (Version None)
Quarter: 2007Q2

REPORT INFORMATION
  Report Type: 
  Country: None (occurrence: None)
  Receive Date: 20070503
  Receipt Date: 20070419
  Transmission Date: 20071010
  Serious: Yes (Hospitalization)
  Sender: FDA-Public Use
  Company Number: FR-BAYER-200710279BFR

PATIENT
  Age: 78 Year
  Sex: Female

DRUGS (7)
  1. CIPROFLOXACIN HCL [Suspect]
     Indication: CYSTITIS
     Dosage: TOTAL DAILY DOSE: 500 MG  UNIT DOSE: 250 MG
     Route: 048
     Dates: start: 20070225, end: 20070305
  2. LASIX [Concomitant]
     Indication: HYPERTENSION
     Route: 048
  3. METFORMIN HCL [Concomitant]
     Indication: DIABETES MELLITUS
     Route: 048
  4. PREVISCAN [Concomitant]
     Indication: ATRIAL FIBRILLATION
     Dosage: TOTAL DAILY DOSE: 20 MG  UNIT DOSE: 20 MG
     Route: 048
  5. CORDARONE [Concomitant]
     Indication: ATRIAL FIBRILLATION
     Dosage: TOTAL DAILY DOSE: 200 MG  UNIT DOSE: 200 MG
     Route: 048
  6. EFFEXOR [Concomitant]
     Indication: DEPRESSION
     Dosage: TOTAL DAILY DOSE: 37.5 MG  UNIT DOSE: 37.5 MG
     Route: 048
  7. STILNOX [Concomitant]
     Indication: UNEVALUABLE EVENT

REACTIONS (6)
  - CELL DEATH [None]
  - CHOLESTASIS [None]
  - CONVULSION [None]
  - HYPOCALCAEMIA [None]
  - HYPOKALAEMIA [None]
  - MALAISE [None]
